FAERS Safety Report 6932232-2 (Version None)
Quarter: 2010Q3

REPORT INFORMATION
  Report Type: 
  Country: None (occurrence: None)
  Receive Date: 20100819
  Receipt Date: 20100809
  Transmission Date: 20110219
  Serious: Yes (Hospitalization)
  Sender: FDA-Public Use
  Company Number: US-PFIZER INC-2010100589

PATIENT
  Sex: Female
  Weight: 56.689 kg

DRUGS (1)
  1. ESTRING [Suspect]
     Indication: MENOPAUSAL SYMPTOMS
     Dosage: 7.5 UG, UNK
     Route: 067
     Dates: end: 20100801

REACTIONS (2)
  - LIPASE INCREASED [None]
  - VAGINAL DISCHARGE [None]
